FAERS Safety Report 11624099 (Version 1)
Quarter: 2015Q4

REPORT INFORMATION
  Report Type: Spontaneous
  Country: US (occurrence: US)
  Receive Date: 20151013
  Receipt Date: 20151013
  Transmission Date: 20160304
  Serious: No
  Sender: FDA-Public Use
  Company Number: US-JNJFOC-20150901404

PATIENT
  Age: 60 Year
  Sex: Female
  Weight: 48.99 kg

DRUGS (4)
  1. MULTIVITAMINS [Concomitant]
     Active Substance: VITAMINS
     Indication: ROUTINE HEALTH MAINTENANCE
     Dosage: 40 YEARS
     Route: 065
  2. WOMENS ROGAINE UNSCENTED [Suspect]
     Active Substance: MINOXIDIL
     Indication: ALOPECIA
     Dosage: SEVERAL SMALL SQUIRTS DAILY
     Route: 061
     Dates: end: 20150815
  3. WOMENS ROGAINE UNSCENTED [Suspect]
     Active Substance: MINOXIDIL
     Route: 061
  4. LANSOPRAZOLE. [Concomitant]
     Active Substance: LANSOPRAZOLE
     Indication: GASTROOESOPHAGEAL REFLUX DISEASE
     Dosage: 7YEARS
     Route: 065

REACTIONS (5)
  - Hair texture abnormal [Recovered/Resolved]
  - Product quality issue [Unknown]
  - Reaction to drug excipients [Recovered/Resolved]
  - Product label confusion [Unknown]
  - Hair colour changes [Recovered/Resolved]
